FAERS Safety Report 4627991-8 (Version None)
Quarter: 2005Q2

REPORT INFORMATION
  Report Type: 
  Country: None (occurrence: None)
  Receive Date: 20050405
  Receipt Date: 20050405
  Transmission Date: 20051028
  Serious: Yes (Other)
  Sender: FDA-Public Use
  Company Number: None

PATIENT
  Age: 84 Year
  Sex: Female

DRUGS (2)
  1. EFFEXOR XR [Suspect]
     Indication: DEPRESSION
     Dosage: 150MG DAILY PO
     Route: 048
     Dates: start: 20050225
  2. ULTRACET [Suspect]
     Indication: PAIN
     Dosage: 37.5/ 325 2 TABLETS FOUR TIMES DAILY PO
     Route: 048
     Dates: start: 20050225, end: 20050326

REACTIONS (7)
  - ANXIETY [None]
  - CONFUSIONAL STATE [None]
  - DEPRESSED LEVEL OF CONSCIOUSNESS [None]
  - HOT FLUSH [None]
  - NAUSEA [None]
  - TREMOR [None]
  - VOMITING [None]
